FAERS Safety Report 8831718 (Version 2)
Quarter: 2012Q4

REPORT INFORMATION
  Report Type: 
  Country: GB (occurrence: GB)
  Receive Date: 20121009
  Receipt Date: 20121105
  Transmission Date: 20130627
  Serious: Yes (Death)
  Sender: FDA-Public Use
  Company Number: GB-ASTRAZENECA-2012SE77104

PATIENT
  Age: 24593 Day
  Sex: Female
  Weight: 72.8 kg

DRUGS (12)
  1. BRILIQUE [Suspect]
     Indication: ACUTE MYOCARDIAL INFARCTION
     Route: 048
     Dates: start: 20120905, end: 20120919
  2. ASPIRIN [Concomitant]
     Route: 048
  3. AMLODIPINE [Concomitant]
     Indication: HYPERTENSION
     Route: 048
  4. ATORVASTATIN [Concomitant]
     Indication: BLOOD CHOLESTEROL ABNORMAL
  5. PERINDOPRIL [Concomitant]
     Indication: HYPERTENSION
  6. ESOMEPRAZOLE [Concomitant]
  7. RANOLAZINE [Concomitant]
  8. LACTULOSE [Concomitant]
  9. BISOPROLOL [Concomitant]
     Route: 048
  10. FONDAPARINUX [Concomitant]
  11. NOVOMIX 30 [Concomitant]
  12. NOVOMIX 30 [Concomitant]

REACTIONS (2)
  - Atrioventricular block complete [Fatal]
  - Syncope [Fatal]
